FAERS Safety Report 4930436-1 (Version None)
Quarter: 2006Q1

REPORT INFORMATION
  Report Type: 
  Country: None (occurrence: None)
  Receive Date: 20060118
  Receipt Date: 20050826
  Transmission Date: 20060701
  Serious: No
  Sender: FDA-Public Use
  Company Number: 2005001687

PATIENT

DRUGS (1)
  1. TARCEVA [Suspect]
     Indication: NON-SMALL CELL LUNG CANCER
     Dosage: SEE IMAGE
     Route: 048

REACTIONS (9)
  - ANXIETY [None]
  - GLOSSODYNIA [None]
  - MUSCLE SPASMS [None]
  - NERVOUSNESS [None]
  - ORAL PAIN [None]
  - PLATELET COUNT DECREASED [None]
  - PRURITUS [None]
  - RASH MACULAR [None]
  - VISUAL DISTURBANCE [None]
